FAERS Safety Report 24841305 (Version 1)
Quarter: 2025Q1

REPORT INFORMATION
  Report Type: Spontaneous
  Country: CN (occurrence: CN)
  Receive Date: 20250114
  Receipt Date: 20250114
  Transmission Date: 20250408
  Serious: Yes (Hospitalization)
  Sender: ROCHE
  Company Number: CN-ROCHE-10000175074

PATIENT
  Age: 68 Year
  Sex: Female
  Weight: 65 kg

DRUGS (1)
  1. BALOXAVIR MARBOXIL [Suspect]
     Active Substance: BALOXAVIR MARBOXIL
     Indication: Influenza
     Route: 048
     Dates: start: 20241226, end: 20241226

REACTIONS (4)
  - Lip oedema [Recovering/Resolving]
  - Ecchymosis [Recovering/Resolving]
  - Lip erythema [Recovering/Resolving]
  - Oral discharge [Recovering/Resolving]

NARRATIVE: CASE EVENT DATE: 20250101
